FAERS Safety Report 9311767 (Version 2)
Quarter: 2013Q2

REPORT INFORMATION
  Report Type: Spontaneous
  Country: US (occurrence: US)
  Receive Date: 20130524
  Receipt Date: 20130529
  Transmission Date: 20140414
  Serious: Yes (Other)
  Sender: FDA-Public Use
  Company Number: US-RB-054267-13

PATIENT
  Age: 67 Year
  Sex: Female

DRUGS (6)
  1. DELSYM CHILD GRAPE [Suspect]
     Indication: COUGH
     Dosage: TOTAL 2 DOSES, ONE ON 10-MAY-2013 AND NEXT ON 11-MAY-2013
     Route: 048
     Dates: start: 20130510
  2. DELSYM CHILD GRAPE [Suspect]
     Indication: NASOPHARYNGITIS
     Dosage: TOTAL 2 DOSES, ONE ON 10-MAY-2013 AND NEXT ON 11-MAY-2013
     Route: 048
     Dates: start: 20130510
  3. BABY ASPIRIN [Concomitant]
     Indication: PRODUCT USED FOR UNKNOWN INDICATION
  4. FISH OIL [Concomitant]
     Indication: PRODUCT USED FOR UNKNOWN INDICATION
  5. CALCIUM [Concomitant]
     Indication: PRODUCT USED FOR UNKNOWN INDICATION
  6. CENTRUM SILVER [Concomitant]
     Indication: PRODUCT USED FOR UNKNOWN INDICATION

REACTIONS (2)
  - Heart rate irregular [Recovered/Resolved]
  - Hyperhidrosis [Recovered/Resolved]
